FAERS Safety Report 7342094-X (Version None)
Quarter: 2011Q1

REPORT INFORMATION
  Report Type: 
  Country: None (occurrence: None)
  Receive Date: 20110309
  Receipt Date: 20110228
  Transmission Date: 20110831
  Serious: Yes (Other)
  Sender: FDA-Public Use
  Company Number: FR-ASTRAZENECA-2011SE10903

PATIENT
  Sex: Female

DRUGS (2)
  1. ZOMIGORO [Suspect]
     Indication: MIGRAINE
     Route: 048
  2. ATARAX [Suspect]
     Route: 065
     Dates: end: 20110101

REACTIONS (1)
  - GLAUCOMA [None]
